FAERS Safety Report 4721912-5 (Version None)
Quarter: 2005Q3

REPORT INFORMATION
  Report Type: 
  Country: None (occurrence: None)
  Receive Date: 20050720
  Receipt Date: 20050708
  Transmission Date: 20060218
  Serious: Yes (Life-Threatening, Hospitalization)
  Sender: FDA-Public Use
  Company Number: 2005-07-0288

PATIENT
  Age: 4 Year
  Sex: Male
  Weight: 22 kg

DRUGS (10)
  1. CLARITIN [Suspect]
     Indication: HYPERSENSITIVITY
     Dosage: 5 MG QD ORAL
     Route: 048
     Dates: start: 20050212, end: 20050213
  2. CLARITIN [Suspect]
  3. BETAMETHASONE [Suspect]
     Indication: HYPERSENSITIVITY
     Dosage: 70 MG ORAL
     Route: 048
     Dates: start: 20050212, end: 20050213
  4. BETAMETHASONE [Suspect]
  5. OZOTHINE A LA DIPROPHYLLINE SUPPOSITORIES [Suspect]
     Indication: NASOPHARYNGITIS
     Dosage: 2 QD RECTAL
     Route: 054
     Dates: start: 20050224, end: 20050228
  6. OZOTHINE A LA DIPROPHYLLINE SUPPOSITORIES [Suspect]
  7. RHINOTROPHYL NASAL SOLUTION (TENOIC ACID / ETHANOLAM NASAL SOLUTION [Suspect]
     Indication: NASOPHARYNGITIS
     Dosage: 3 QD NASAL SPRAY
     Route: 045
     Dates: start: 20050224, end: 20050228
  8. RHINOTROPHYL NASAL SOLUTION (TENOIC ACID / ETHANOLAM NASAL SOLUTION [Suspect]
  9. ADVIL [Suspect]
     Indication: PYREXIA
     Dosage: 3 QD ORAL
     Route: 048
     Dates: start: 20050224
  10. DOLIPRANE SUPPOSITORIES [Suspect]
     Indication: PYREXIA
     Dosage: 1-3 QD RECTAL
     Route: 054
     Dates: start: 20050224

REACTIONS (4)
  - BONE MARROW DEPRESSION [None]
  - IDIOPATHIC THROMBOCYTOPENIC PURPURA [None]
  - NASOPHARYNGITIS [None]
  - PYREXIA [None]
